FAERS Safety Report 4917527-6 (Version None)
Quarter: 2006Q1

REPORT INFORMATION
  Report Type: 
  Country: None (occurrence: None)
  Receive Date: 20060221
  Receipt Date: 20050608
  Transmission Date: 20060701
  Serious: Yes (Hospitalization)
  Sender: FDA-Public Use
  Company Number: US-MERCK-0506USA01413

PATIENT
  Age: 49 Year
  Sex: Female

DRUGS (1)
  1. VIOXX [Suspect]
     Route: 048
     Dates: start: 20000901, end: 20040901

REACTIONS (27)
  - ASTHENIA [None]
  - BACK PAIN [None]
  - BALANCE DISORDER [None]
  - BURSITIS [None]
  - CAUDA EQUINA SYNDROME [None]
  - CEREBROVASCULAR ACCIDENT [None]
  - DEPRESSION [None]
  - DIFFICULTY IN WALKING [None]
  - DIZZINESS [None]
  - DRUG INEFFECTIVE [None]
  - FATIGUE [None]
  - FIBROMYALGIA [None]
  - GAIT DISTURBANCE [None]
  - HEMIPARESIS [None]
  - MIXED HYPERLIPIDAEMIA [None]
  - MUSCLE SPASMS [None]
  - NEPHRITIS INTERSTITIAL [None]
  - PAIN [None]
  - PARAESTHESIA [None]
  - PARONYCHIA [None]
  - PERONEAL NERVE PALSY [None]
  - RADICULAR PAIN [None]
  - SHOULDER PAIN [None]
  - TRANSIENT ISCHAEMIC ATTACK [None]
  - URINARY TRACT INFECTION [None]
  - VAGINAL PROLAPSE [None]
  - VARICOPHLEBITIS [None]
